FAERS Safety Report 7399328-5 (Version None)
Quarter: 2011Q2

REPORT INFORMATION
  Report Type: 
  Country: None (occurrence: None)
  Receive Date: 20110407
  Receipt Date: 20110404
  Transmission Date: 20111010
  Serious: Yes (Other)
  Sender: FDA-Public Use
  Company Number: GB-PFIZER INC-2011074648

PATIENT
  Age: 58 Year
  Sex: Male
  Weight: 77 kg

DRUGS (1)
  1. CHAMPIX [Suspect]

REACTIONS (6)
  - CONFUSIONAL STATE [None]
  - AMNESIA [None]
  - AGITATION [None]
  - MOOD SWINGS [None]
  - HALLUCINATION, VISUAL [None]
  - COORDINATION ABNORMAL [None]
